FAERS Safety Report 5222330-6 (Version None)
Quarter: 2007Q1

REPORT INFORMATION
  Report Type: 
  Country: None (occurrence: None)
  Receive Date: 20070124
  Receipt Date: 20070117
  Transmission Date: 20070707
  Serious: Yes (Other)
  Sender: FDA-Public Use
  Company Number: CIP06002521

PATIENT
  Age: 89 Year
  Sex: Female
  Weight: 50.3 kg

DRUGS (6)
  1. ACTONEL [Suspect]
     Indication: OSTEOPOROSIS
     Dosage: 35 MG ONCE WEEKLY, ORAL
     Route: 048
     Dates: start: 20060801, end: 20061019
  2. NAMENDA [Concomitant]
  3. ACETYLSALICYLIC (ACETYLSALICYLIC ACID) [Concomitant]
  4. CALCARB WITH VITAMIN D (VITAMIN D NOS, CALCIUM CARBONATE) [Concomitant]
  5. METAMUCIAL  /00091301/ (PSYLLIUMHYDROPHILIC MUCILLOID) [Concomitant]
  6. MULTIVIT (VITAMINS NOS) [Concomitant]

REACTIONS (6)
  - BLOOD PRESSURE SYSTOLIC INCREASED [None]
  - DIZZINESS [None]
  - FALL [None]
  - HYPERTENSION [None]
  - NAUSEA [None]
  - RENAL FAILURE [None]
